FAERS Safety Report 15885441 (Version 2)
Quarter: 2019Q1

REPORT INFORMATION
  Report Type: Report from Study
  Country: CZ (occurrence: CZ)
  Receive Date: 20190129
  Receipt Date: 20190311
  Transmission Date: 20190417
  Serious: Yes (Other)
  Sender: FDA-Public Use
  Company Number: PHHY2018CZ015297

PATIENT

DRUGS (4)
  1. TRAMETINIB [Suspect]
     Active Substance: TRAMETINIB
     Dosage: UNK
     Route: 048
     Dates: end: 20190305
  2. TRAMETINIB [Suspect]
     Active Substance: TRAMETINIB
     Indication: METASTATIC MALIGNANT MELANOMA
     Dosage: UNK UKN, UNK
     Route: 048
     Dates: start: 20180109, end: 20180306
  3. DABRAFENIB [Suspect]
     Active Substance: DABRAFENIB
     Indication: METASTATIC MALIGNANT MELANOMA
     Dosage: UNK
     Route: 048
     Dates: start: 20180109, end: 20180306
  4. TRAMETINIB [Suspect]
     Active Substance: TRAMETINIB
     Dosage: UNK
     Route: 048
     Dates: end: 20181219

REACTIONS (14)
  - Folliculitis [Unknown]
  - Chills [Unknown]
  - Paronychia [Recovered/Resolved]
  - Growth retardation [Unknown]
  - Furuncle [Recovered/Resolved]
  - Dermatitis acneiform [Recovered/Resolved]
  - Otitis media [Recovered/Resolved]
  - Erythema [Recovered/Resolved]
  - Herpes zoster [Recovered/Resolved]
  - Fungal skin infection [Recovered/Resolved]
  - Blood urea increased [Unknown]
  - Hair colour changes [Unknown]
  - Rhinitis allergic [Recovered/Resolved]
  - Conjunctivitis allergic [Recovered/Resolved]

NARRATIVE: CASE EVENT DATE: 20180111
